FAERS Safety Report 7386977-3 (Version None)
Quarter: 2011Q1

REPORT INFORMATION
  Report Type: 
  Country: None (occurrence: None)
  Receive Date: 20110331
  Receipt Date: 20110330
  Transmission Date: 20110831
  Serious: Yes (Hospitalization, Other)
  Sender: FDA-Public Use
  Company Number: JP-PFIZER INC-2010167511

PATIENT
  Age: 74 Year
  Sex: Female
  Weight: 46 kg

DRUGS (4)
  1. SUNITINIB MALATE [Suspect]
     Indication: METASTATIC RENAL CELL CARCINOMA
     Dosage: 25 MG, 1X/DAY
     Route: 048
     Dates: start: 20080724, end: 20100406
  2. WARFARIN [Concomitant]
     Route: 048
     Dates: start: 20080707
  3. NORVASC [Concomitant]
     Route: 048
     Dates: start: 20080729
  4. DIOVANE [Concomitant]
     Route: 048
     Dates: start: 20080725

REACTIONS (4)
  - INTERSTITIAL LUNG DISEASE [None]
  - PLATELET COUNT DECREASED [None]
  - HAEMOGLOBIN DECREASED [None]
  - WHITE BLOOD CELL COUNT DECREASED [None]
